FAERS Safety Report 26181165 (Version 1)
Quarter: 2025Q4

REPORT INFORMATION
  Report Type: Spontaneous
  Country: US (occurrence: US)
  Receive Date: 20251221
  Receipt Date: 20251221
  Transmission Date: 20260117
  Serious: No
  Sender: AZURITY PHARMACEUTICALS
  Company Number: US-AZURITY-2025BTE00328

PATIENT
  Age: 63 Year
  Sex: Female
  Weight: 71.655 kg

DRUGS (5)
  1. SUTAB [Suspect]
     Active Substance: MAGNESIUM SULFATE\POTASSIUM CHLORIDE\SODIUM SULFATE
     Indication: Constipation
     Dosage: 1 X 12 TABLETS, 1X
     Route: 048
     Dates: start: 20250516
  2. ESTRADIOL [Concomitant]
     Active Substance: ESTRADIOL
  3. ASPIRIN [Concomitant]
     Active Substance: ASPIRIN
  4. ALLERGY MEDICATION [Concomitant]
     Active Substance: DIPHENHYDRAMINE HYDROCHLORIDE
  5. PROPYZOLE [Concomitant]

REACTIONS (2)
  - Vomiting [Recovered/Resolved]
  - Off label use [Not Recovered/Not Resolved]

NARRATIVE: CASE EVENT DATE: 20250516
